FAERS Safety Report 8201533-2 (Version None)
Quarter: 2012Q1

REPORT INFORMATION
  Report Type: 
  Country: None (occurrence: None)
  Receive Date: 20120312
  Receipt Date: 20120306
  Transmission Date: 20120608
  Serious: Yes (Other)
  Sender: FDA-Public Use
  Company Number: JP-GLAXOSMITHKLINE-B0782253A

PATIENT
  Sex: Female
  Weight: 63 kg

DRUGS (19)
  1. ALFAROL [Concomitant]
     Indication: OSTEOPOROSIS
     Dosage: 1MCG PER DAY
     Route: 048
     Dates: end: 20120122
  2. MICARDIS [Concomitant]
     Indication: HYPERTENSION
     Dosage: 40MG PER DAY
     Route: 048
     Dates: end: 20120122
  3. METFORMIN HCL [Concomitant]
     Indication: DIABETES MELLITUS
     Route: 048
     Dates: end: 20120122
  4. ALOSENN [Concomitant]
     Indication: CONSTIPATION
     Dosage: 1G PER DAY
     Route: 048
     Dates: end: 20120122
  5. ADONA (AC-17) [Concomitant]
     Dosage: 90MG PER DAY
     Route: 048
  6. GABAPENTIN [Concomitant]
     Indication: DIABETIC NEUROPATHY
     Dosage: 400MG PER DAY
     Route: 048
     Dates: end: 20120122
  7. CIRCULETIN [Concomitant]
     Dosage: 75MG PER DAY
     Route: 048
  8. LIVALO [Concomitant]
     Indication: HYPERLIPIDAEMIA
     Dosage: 2MG PER DAY
     Route: 048
     Dates: end: 20120122
  9. VALTREX [Suspect]
     Indication: HERPES ZOSTER
     Dosage: 3000MG PER DAY
     Route: 048
     Dates: start: 20120117, end: 20120122
  10. CALCIUM ASPARTATE [Concomitant]
     Indication: RETINAL OEDEMA
     Dosage: 300MG PER DAY
     Route: 048
     Dates: end: 20120122
  11. NATEGLINIDE [Concomitant]
     Indication: DIABETES MELLITUS
     Dosage: 180MG PER DAY
     Route: 048
     Dates: end: 20120122
  12. LANTUS [Concomitant]
     Indication: DIABETES MELLITUS
     Dosage: 34IU PER DAY
     Route: 058
     Dates: end: 20120122
  13. ALENDRONATE SODIUM [Concomitant]
     Indication: OSTEOPOROSIS
     Route: 048
     Dates: end: 20120122
  14. HUMALOG [Concomitant]
     Indication: DIABETES MELLITUS
     Dosage: 12IU PER DAY
     Route: 058
     Dates: end: 20120122
  15. FUROSEMIDE [Concomitant]
     Indication: HYPERTENSION
     Dosage: 20MG PER DAY
     Route: 048
     Dates: end: 20120122
  16. DIAMOX SRC [Suspect]
     Indication: RETINAL OEDEMA
     Dosage: 250MG PER DAY
     Route: 048
     Dates: end: 20120122
  17. ASPARA-CA [Concomitant]
     Indication: OSTEOPOROSIS
     Dosage: 1200MG PER DAY
     Route: 048
     Dates: end: 20120122
  18. LANSOPRAZOLE [Concomitant]
     Dosage: 15MG PER DAY
     Route: 048
     Dates: end: 20120122
  19. EPADEL [Concomitant]
     Indication: HYPERLIPIDAEMIA
     Dosage: 1800MG PER DAY
     Route: 048
     Dates: end: 20120122

REACTIONS (9)
  - BLOOD SODIUM INCREASED [None]
  - BLOOD POTASSIUM INCREASED [None]
  - BLOOD CREATININE INCREASED [None]
  - BLOOD UREA INCREASED [None]
  - ALTERED STATE OF CONSCIOUSNESS [None]
  - RENAL IMPAIRMENT [None]
  - URINE OUTPUT DECREASED [None]
  - RENAL FAILURE ACUTE [None]
  - MUSCULAR WEAKNESS [None]
